FAERS Safety Report 15094646 (Version 1)
Quarter: 2018Q3

REPORT INFORMATION
  Report Type: Spontaneous
  Country: US (occurrence: US)
  Receive Date: 20180701
  Receipt Date: 20180701
  Transmission Date: 20181010
  Serious: Yes (Other)
  Sender: FDA-Public Use
  Company Number: US-JNJFOC-20180624369

PATIENT
  Sex: Male

DRUGS (1)
  1. IMBRUVICA [Suspect]
     Active Substance: IBRUTINIB
     Indication: HAIRY CELL LEUKAEMIA
     Dosage: ^A NORMAL DOSE^
     Route: 065

REACTIONS (4)
  - Product use in unapproved indication [Unknown]
  - Malignant melanoma [Unknown]
  - Metastases to lung [Unknown]
  - Off label use [Unknown]
